FAERS Safety Report 4456332-4 (Version None)
Quarter: 2004Q3

REPORT INFORMATION
  Report Type: 
  Country: None (occurrence: None)
  Receive Date: 20040917
  Receipt Date: 20040827
  Transmission Date: 20050211
  Serious: Yes (Hospitalization, Other)
  Sender: FDA-Public Use
  Company Number: USA040568089

PATIENT
  Age: 46 Year
  Sex: Male
  Weight: 167 kg

DRUGS (11)
  1. HUMULIN 70/30 [Suspect]
     Dosage: 110 U DAY
     Dates: start: 19910101
  2. HUMULIN R [Suspect]
     Dates: start: 19890101, end: 19910101
  3. HUMULIN N [Suspect]
     Dates: start: 19890101, end: 19910101
  4. TOPROL-XL [Concomitant]
  5. ALTACE [Concomitant]
  6. LASIX [Concomitant]
  7. XANAX [Concomitant]
  8. ZOCOR [Concomitant]
  9. COUMADIN [Concomitant]
  10. DIGOXIN [Concomitant]
  11. METFORMIN [Concomitant]

REACTIONS (18)
  - ABASIA [None]
  - ANXIETY [None]
  - ASTHMA [None]
  - ASTIGMATISM [None]
  - BACK INJURY [None]
  - BLOOD CHOLESTEROL ABNORMAL [None]
  - BLOOD GLUCOSE INCREASED [None]
  - BLOOD PRESSURE INCREASED [None]
  - BRONCHITIS CHRONIC [None]
  - CARDIAC FAILURE CONGESTIVE [None]
  - CARDIOMEGALY [None]
  - DIZZINESS [None]
  - FEELING ABNORMAL [None]
  - GLYCOSYLATED HAEMOGLOBIN INCREASED [None]
  - MYOCARDIAL INFARCTION [None]
  - PHARMACEUTICAL PRODUCT COMPLAINT [None]
  - SLEEP APNOEA SYNDROME [None]
  - TRANSIENT ISCHAEMIC ATTACK [None]
